FAERS Safety Report 9310904 (Version 1)
Quarter: 2013Q2

REPORT INFORMATION
  Report Type: Spontaneous
  Country: US (occurrence: None)
  Receive Date: 20130523
  Receipt Date: 20130523
  Transmission Date: 20140414
  Serious: No
  Sender: FDA-Public Use
  Company Number: None

PATIENT
  Age: 59 Year
  Sex: Female

DRUGS (1)
  1. XELODA [Suspect]
     Indication: BREAST CANCER
     Dosage: EVERY 12 HOURS
     Route: 048
     Dates: start: 20130320, end: 20130507

REACTIONS (6)
  - Dry skin [None]
  - Bone pain [None]
  - Constipation [None]
  - Vomiting [None]
  - Urinary tract infection [None]
  - Onychomadesis [None]
